FAERS Safety Report 25709163 (Version 2)
Quarter: 2025Q3

REPORT INFORMATION
  Report Type: Spontaneous
  Country: US (occurrence: US)
  Receive Date: 20250821
  Receipt Date: 20250906
  Transmission Date: 20251020
  Serious: No
  Sender: AMGEN
  Company Number: US-AMGEN-USASP2025164779

PATIENT
  Age: 84 Year
  Sex: Female

DRUGS (3)
  1. IMLYGIC [Suspect]
     Active Substance: TALIMOGENE LAHERPAREPVEC
     Indication: Malignant melanoma
     Route: 058
     Dates: start: 20250805, end: 20250805
  2. IMLYGIC [Suspect]
     Active Substance: TALIMOGENE LAHERPAREPVEC
     Route: 058
     Dates: start: 20250818
  3. IMLYGIC [Suspect]
     Active Substance: TALIMOGENE LAHERPAREPVEC
     Route: 058

REACTIONS (4)
  - Mental status changes [Unknown]
  - Fatigue [Unknown]
  - Pyrexia [Unknown]
  - Product storage error [Unknown]

NARRATIVE: CASE EVENT DATE: 20250805
